FAERS Safety Report 6004656-1 (Version None)
Quarter: 2008Q4

REPORT INFORMATION
  Report Type: 
  Country: None (occurrence: None)
  Receive Date: 20081216
  Receipt Date: 20081208
  Transmission Date: 20090506
  Serious: Yes (Other)
  Sender: FDA-Public Use
  Company Number: CA-ASTRAZENECA-2008UW27880

PATIENT
  Age: 24972 Day
  Sex: Male
  Weight: 122.5 kg

DRUGS (8)
  1. CRESTOR [Suspect]
     Indication: PROPHYLAXIS
     Route: 048
     Dates: start: 20081205
  2. AVALID [Concomitant]
     Indication: BLOOD PRESSURE
     Route: 048
     Dates: start: 20040101
  3. ALLOPURINOL [Concomitant]
     Indication: GOUT
     Route: 048
     Dates: start: 20050101
  4. NORVASC [Concomitant]
     Indication: BLOOD PRESSURE
     Route: 048
     Dates: start: 20050101
  5. GLYBURIDE [Concomitant]
     Indication: DIABETES MELLITUS
     Route: 048
     Dates: start: 20050101
  6. METFORMIN HCL [Concomitant]
     Indication: DIABETES MELLITUS
     Route: 048
     Dates: start: 20050101
  7. FLOMAX [Concomitant]
     Indication: PROSTATOMEGALY
     Route: 048
     Dates: start: 20060101
  8. AVODART [Concomitant]
     Indication: PROSTATOMEGALY
     Route: 048
     Dates: start: 20060101

REACTIONS (2)
  - OEDEMA PERIPHERAL [None]
  - PAIN IN EXTREMITY [None]
